FAERS Safety Report 7279606-0 (Version None)
Quarter: 2011Q1

REPORT INFORMATION
  Report Type: 
  Country: None (occurrence: None)
  Receive Date: 20110203
  Receipt Date: 20110203
  Transmission Date: 20110831
  Serious: Yes (Other)
  Sender: FDA-Public Use
  Company Number: None

PATIENT
  Sex: Male
  Weight: 75.6 kg

DRUGS (1)
  1. LENALIDOMIDE [Suspect]
     Indication: ACUTE MYELOID LEUKAEMIA
     Dosage: 5MG QD ON DAYS 1-21 ORAL
     Route: 048
     Dates: start: 20100624, end: 20101201

REACTIONS (3)
  - WEIGHT DECREASED [None]
  - ABDOMINAL DISTENSION [None]
  - GASTRIC CANCER [None]
